FAERS Safety Report 4276476-X (Version None)
Quarter: 2004Q1

REPORT INFORMATION
  Report Type: 
  Country: None (occurrence: None)
  Receive Date: 20040120
  Receipt Date: 20040109
  Transmission Date: 20041129
  Serious: Yes (Death, Hospitalization)
  Sender: FDA-Public Use
  Company Number: USA-2003-0010449

PATIENT
  Age: 31 Year
  Sex: Female
  Weight: 57 kg

DRUGS (2)
  1. OXYCONTIN [Suspect]
     Indication: PAIN
     Dosage: 40 MG , SEE TEXT, ORAL
     Route: 048
  2. CLONAZEPAM [Suspect]
     Dosage: 2 MG, ORAL
     Route: 048

REACTIONS (9)
  - ACCIDENTAL OVERDOSE [None]
  - GLUCOSE URINE PRESENT [None]
  - GRANULOMA [None]
  - HEPATITIS GRANULOMATOUS [None]
  - MULTIPLE DRUG OVERDOSE [None]
  - PULMONARY OEDEMA [None]
  - SELF-MEDICATION [None]
  - SPLEEN DISORDER [None]
  - TREATMENT NONCOMPLIANCE [None]
